FAERS Safety Report 16071290 (Version 1)
Quarter: 2019Q1

REPORT INFORMATION
  Report Type: Spontaneous
  Country: US (occurrence: US)
  Receive Date: 20190314
  Receipt Date: 20190314
  Transmission Date: 20190418
  Serious: No
  Sender: FDA-Public Use
  Company Number: US-PFIZER INC-2019105248

PATIENT
  Age: 45 Year
  Sex: Female
  Weight: 127.46 kg

DRUGS (1)
  1. VENLAFAXINE HCL [Suspect]
     Active Substance: VENLAFAXINE HYDROCHLORIDE
     Indication: BIPOLAR DISORDER
     Dosage: 150 MG, 2X/DAY (TWO A DAY IN THE MORNING)
     Route: 048
     Dates: start: 20190215

REACTIONS (1)
  - Drug ineffective for unapproved indication [Unknown]
